FAERS Safety Report 6307987-0 (Version None)
Quarter: 2009Q3

REPORT INFORMATION
  Report Type: 
  Country: None (occurrence: None)
  Receive Date: 20090813
  Receipt Date: 20090731
  Transmission Date: 20100115
  Serious: Yes (Life-Threatening)
  Sender: FDA-Public Use
  Company Number: DE-GENENTECH-287557

PATIENT
  Age: 52 Year
  Sex: Male

DRUGS (10)
  1. MABTHERA [Suspect]
     Indication: B-CELL LYMPHOMA
     Dosage: 6 UNK, Q3W
     Route: 042
  2. CYCLOPHOSPHAMIDE [Suspect]
     Indication: LYMPHOMA
     Route: 065
  3. DOXORUBICIN HCL [Suspect]
     Indication: LYMPHOMA
     Route: 065
  4. PREDNISONE [Suspect]
     Indication: LYMPHOMA
     Route: 065
  5. VINCRISTINE [Suspect]
     Indication: LYMPHOMA
     Route: 065
  6. PANTOPRAZOLE SODIUM [Concomitant]
     Indication: DRUG USE FOR UNKNOWN INDICATION
  7. POLYETHYLENE GLYCOL [Concomitant]
     Indication: DRUG USE FOR UNKNOWN INDICATION
  8. PARACETAMOL [Concomitant]
     Indication: DRUG USE FOR UNKNOWN INDICATION
  9. TORSEMIDE [Concomitant]
     Indication: DRUG USE FOR UNKNOWN INDICATION
  10. ENZYME NOS [Concomitant]
     Indication: DRUG USE FOR UNKNOWN INDICATION

REACTIONS (2)
  - CONFUSIONAL STATE [None]
  - PROGRESSIVE MULTIFOCAL LEUKOENCEPHALOPATHY [None]
